FAERS Safety Report 7762814-X (Version None)
Quarter: 2011Q3

REPORT INFORMATION
  Report Type: 
  Country: None (occurrence: None)
  Receive Date: 20110920
  Receipt Date: 20110915
  Transmission Date: 20111222
  Serious: Yes (Death, Hospitalization)
  Sender: FDA-Public Use
  Company Number: GB-MERCK-1108GBR00079

PATIENT
  Age: 73 Year
  Sex: Female

DRUGS (5)
  1. PRIMAXIN [Suspect]
     Indication: UROSEPSIS
     Route: 042
  2. SODIUM CHLORIDE INJ [Suspect]
     Indication: DEHYDRATION
     Route: 042
  3. CYCLOSPORINE [Concomitant]
     Route: 065
  4. AZATHIOPRINE [Concomitant]
     Route: 065
  5. PREDNISOLONE [Concomitant]
     Route: 065

REACTIONS (5)
  - RESPIRATORY FAILURE [None]
  - DEPRESSED LEVEL OF CONSCIOUSNESS [None]
  - DEATH [None]
  - PNEUMONIA [None]
  - RENAL FAILURE ACUTE [None]
